FAERS Safety Report 10716376 (Version 1)
Quarter: 2015Q1

REPORT INFORMATION
  Report Type: Spontaneous
  Country: US (occurrence: None)
  Receive Date: 20150115
  Receipt Date: 20150115
  Transmission Date: 20150721
  Serious: Yes (Other)
  Sender: FDA-Public Use
  Company Number: None

PATIENT
  Age: 47 Year
  Sex: Female
  Weight: 111.13 kg

DRUGS (1)
  1. HUMIRA [Suspect]
     Active Substance: ADALIMUMAB
     Indication: PSORIASIS
     Dosage: INJECTABLE EVERY OTHER WEEK SUBCUTANEOUS 057
     Route: 058

REACTIONS (1)
  - Headache [None]

NARRATIVE: CASE EVENT DATE: 20150101
